FAERS Safety Report 11507659 (Version 1)
Quarter: 2015Q3

REPORT INFORMATION
  Report Type: Spontaneous
  Country: None (occurrence: None)
  Receive Date: 20150914
  Receipt Date: 20150914
  Transmission Date: 20151125
  Serious: No
  Sender: FDA-Public Use
  Company Number: None

PATIENT
  Age: 58 Year
  Sex: Female
  Weight: 70.31 kg

DRUGS (6)
  1. RESTASIS [Suspect]
     Active Substance: CYCLOSPORINE
     Indication: DRY EYE
     Dosage: 2 DROPS/D  TWICE DAILY  INTO THE EYE
     Dates: start: 20150430, end: 20150901
  2. ASPIRIN. [Concomitant]
     Active Substance: ASPIRIN
  3. ALTACE [Concomitant]
     Active Substance: RAMIPRIL
  4. METOPROLOL [Concomitant]
     Active Substance: METOPROLOL
  5. MVI [Concomitant]
     Active Substance: VITAMINS
  6. FISH OIL [Concomitant]
     Active Substance: FISH OIL

REACTIONS (5)
  - Vision blurred [None]
  - Eye irritation [None]
  - Eye pain [None]
  - Condition aggravated [None]
  - Productive cough [None]

NARRATIVE: CASE EVENT DATE: 20150901
